FAERS Safety Report 5095149-7 (Version None)
Quarter: 2006Q3

REPORT INFORMATION
  Report Type: 
  Country: None (occurrence: None)
  Receive Date: 20060731
  Receipt Date: 20060413
  Transmission Date: 20061208
  Serious: No
  Sender: FDA-Public Use
  Company Number: 2006PV012125

PATIENT
  Age: 56 Year
  Sex: Female
  Weight: 70.3075 kg

DRUGS (4)
  1. BYETTA [Suspect]
     Indication: DIABETES MELLITUS NON-INSULIN-DEPENDENT
     Dosage: 5 MCG;BID;SC
     Route: 058
     Dates: start: 20060331, end: 20060413
  2. INDERAL [Concomitant]
  3. ACTOS /USA/ [Concomitant]
  4. METFORMIN [Concomitant]

REACTIONS (4)
  - CHEST PAIN [None]
  - HEADACHE [None]
  - NAUSEA [None]
  - VOMITING [None]
